FAERS Safety Report 5441960-X (Version None)
Quarter: 2007Q3

REPORT INFORMATION
  Report Type: 
  Country: None (occurrence: None)
  Receive Date: 20070904
  Receipt Date: 20070831
  Transmission Date: 20080115
  Serious: Yes (Hospitalization)
  Sender: FDA-Public Use
  Company Number: B0463377A

PATIENT
  Age: 33 Year
  Sex: Female
  Weight: 43 kg

DRUGS (7)
  1. AMBRISENTAN [Suspect]
     Route: 048
     Dates: start: 20070308
  2. SILDENAFIL CITRATE [Suspect]
     Dosage: 12.5MG PER DAY
     Route: 048
     Dates: start: 20051201
  3. EPOPROSTENOL SODIUM [Suspect]
     Route: 042
     Dates: start: 20060101
  4. CITALOPRAM [Concomitant]
     Dosage: 20MG PER DAY
     Route: 048
     Dates: start: 20061201
  5. ALBUTEROL [Concomitant]
     Route: 055
     Dates: start: 20061201
  6. WARFARIN [Concomitant]
     Dosage: 5MG PER DAY
     Route: 048
     Dates: start: 20020101
  7. FLUTICASONE PROPIONATE [Concomitant]
     Dosage: 5MG PER DAY
     Route: 048
     Dates: start: 20060101

REACTIONS (7)
  - DRUG INTERACTION [None]
  - FATIGUE [None]
  - FLUSHING [None]
  - MUSCLE TIGHTNESS [None]
  - MUSCULAR WEAKNESS [None]
  - MYALGIA [None]
  - TREMOR [None]
